FAERS Safety Report 4315256-3 (Version None)
Quarter: 2004Q1

REPORT INFORMATION
  Report Type: 
  Country: None (occurrence: None)
  Receive Date: 20040309
  Receipt Date: 20040226
  Transmission Date: 20041129
  Serious: Yes (Hospitalization)
  Sender: FDA-Public Use
  Company Number: GB-JNJFOC-20040101005

PATIENT
  Age: 67 Year
  Sex: Female

DRUGS (19)
  1. INFLIXIMAB, RECOMBINANT - BLINDED (INFLIXIMAB, RECOMBINANT) LYOPHLIZED [Suspect]
     Indication: PSORIASIS
     Dosage: INTRAVENOUS
     Route: 042
     Dates: start: 20030429
  2. INFLIXIMAB, RECOMBINANT - BLINDED (INFLIXIMAB, RECOMBINANT) LYOPHLIZED [Suspect]
     Indication: PSORIASIS
     Dosage: INTRAVENOUS
     Route: 042
     Dates: start: 20030515
  3. INFLIXIMAB, RECOMBINANT - BLINDED (INFLIXIMAB, RECOMBINANT) LYOPHLIZED [Suspect]
     Indication: PSORIASIS
     Dosage: INTRAVENOUS
     Route: 042
     Dates: start: 20030612
  4. INFLIXIMAB, RECOMBINANT - BLINDED (INFLIXIMAB, RECOMBINANT) LYOPHLIZED [Suspect]
     Indication: PSORIASIS
     Dosage: INTRAVENOUS
     Route: 042
     Dates: start: 20030807
  5. INFLIXIMAB, RECOMBINANT - BLINDED (INFLIXIMAB, RECOMBINANT) LYOPHLIZED [Suspect]
     Indication: PSORIASIS
     Dosage: INTRAVENOUS
     Route: 042
     Dates: start: 20031126
  6. PLACEBO (PLACEBO0 [Suspect]
     Indication: PSORIASIS
     Dates: start: 20030429
  7. PLACEBO (PLACEBO0 [Suspect]
     Indication: PSORIASIS
     Dates: start: 20030515
  8. PLACEBO (PLACEBO0 [Suspect]
     Indication: PSORIASIS
     Dates: start: 20030612
  9. PLACEBO (PLACEBO0 [Suspect]
     Indication: PSORIASIS
     Dates: start: 20030807
  10. PLACEBO (PLACEBO0 [Suspect]
     Indication: PSORIASIS
     Dates: start: 20031126
  11. NEXIUM [Concomitant]
  12. FUROSEMIDE [Concomitant]
  13. LOCOL 20 (FLUVASTATIN SODIUM) [Concomitant]
  14. PANTOZOL (PANTOPRAZOLE SODIUM) [Concomitant]
  15. ZOCOR [Concomitant]
  16. ACETYLSALICYLIC ACID SRT [Concomitant]
  17. ROKOWON (ALL OTHER THERAPEUTIC PRODUCTS) [Concomitant]
  18. FRAXIPARIN (HEPARIN-FRACTION, CALCIUM SALT) [Concomitant]
  19. PRIMAXIN [Concomitant]

REACTIONS (16)
  - ABDOMINAL PAIN [None]
  - ARTHROPATHY [None]
  - BLOOD URIC ACID DECREASED [None]
  - BODY TEMPERATURE INCREASED [None]
  - BRONCHITIS [None]
  - C-REACTIVE PROTEIN INCREASED [None]
  - COUGH [None]
  - DYSPNOEA [None]
  - GLYCOSYLATED HAEMOGLOBIN INCREASED [None]
  - HEPATIC ENZYME INCREASED [None]
  - INFLUENZA [None]
  - INTERSTITIAL LUNG DISEASE [None]
  - PLEURISY [None]
  - PSORIASIS [None]
  - VOMITING [None]
  - WHITE BLOOD CELL COUNT INCREASED [None]
